FAERS Safety Report 15964988 (Version 7)
Quarter: 2024Q1

REPORT INFORMATION
  Report Type: Report from Study
  Country: DE (occurrence: DE)
  Receive Date: 20190215
  Receipt Date: 20240316
  Transmission Date: 20240409
  Serious: Yes (Death, Disabling, Congenital Anomaly, Other)
  Sender: FDA-Public Use
  Company Number: None

PATIENT
  Sex: Female
  Weight: 0.05 kg

DRUGS (25)
  1. EZETIMIBE [Suspect]
     Active Substance: EZETIMIBE
     Dosage: ALSO RECEIVED AS SUSPECT, FROM GESTATIONAL WEEK 0-14
     Route: 064
  2. TACROLIMUS [Suspect]
     Active Substance: TACROLIMUS
     Dosage: FROM GESTATIONAL WEEK 0-14
     Route: 064
     Dates: start: 20111214, end: 20120320
  3. PANTOPRAZOLE [Suspect]
     Active Substance: PANTOPRAZOLE
     Dosage: 40 MG/D, 0-13.6 GESTATIONAL WEEK
     Route: 064
     Dates: start: 20111214, end: 20120320
  4. ENOXAPARIN SODIUM [Suspect]
     Active Substance: ENOXAPARIN SODIUM
     Dosage: UNKNOWN FREQ. (0-14 GW), ALSO RECEIVED AS CONCOMITANT.
     Route: 064
  5. RAMIPRIL [Suspect]
     Active Substance: RAMIPRIL
     Dosage: 20 MG PER DAY, EXPOSURE DURATION: 0-13+6 WEEKS
     Route: 064
     Dates: start: 20111214, end: 20120320
  6. SIMVASTATIN [Suspect]
     Active Substance: SIMVASTATIN
     Dosage: FROM GESTATIONAL WEEK 0-14
     Route: 064
     Dates: start: 20111214, end: 20120320
  7. ALBUTEROL [Suspect]
     Active Substance: ALBUTEROL
     Dosage: FROM GESTATIONAL WEEK 0-14
     Route: 064
  8. METAMIZOLE [Suspect]
     Active Substance: METAMIZOLE
     Dosage: FROM GESTATIONAL WEEK 0-14
     Route: 064
  9. NICOTINE [Suspect]
     Active Substance: NICOTINE
     Dosage: FROM GESTATIONAL WEEK 0-14
     Route: 064
  10. UNSPECIFIED INGREDIENT [Suspect]
     Active Substance: UNSPECIFIED INGREDIENT
     Dosage: UNK
     Route: 064
  11. HYDROXYCHLOROQUINE [Suspect]
     Active Substance: HYDROXYCHLOROQUINE
     Dosage: FROM GESTATIONAL WEEK 0-14
     Route: 064
     Dates: start: 20111214, end: 20120320
  12. ALISKIREN [Suspect]
     Active Substance: ALISKIREN
     Dosage: 300 MG/D, 0-4.6 GESTATIONAL WEEK
     Route: 064
     Dates: start: 20111214, end: 20120117
  13. PREDNISOLONE [Suspect]
     Active Substance: PREDNISOLONE
     Dosage: FROM GESTATIONAL WEEK 0-14
     Route: 064
     Dates: start: 20111214, end: 20120320
  14. ASPIRIN [Suspect]
     Active Substance: ASPIRIN
     Route: 064
  15. RIVAROXABAN [Suspect]
     Active Substance: RIVAROXABAN
     Route: 064
  16. TORSEMIDE [Suspect]
     Active Substance: TORSEMIDE
     Dosage: FROM GESTATIONAL WEEK 0-14
     Route: 064
     Dates: start: 20111214, end: 20120320
  17. METAMIZOLE [Suspect]
     Active Substance: METAMIZOLE
     Dosage: UNK, TRIMESTER: FIRST, PROBABLY ONLY IN HOSPITAL IN WEEK 5
     Route: 064
  18. XARELTO [Suspect]
     Active Substance: RIVAROXABAN
     Dosage: FROM GESTATIONAL WEEK 0-5
     Route: 064
  19. ENOXAPARIN SODIUM [Suspect]
     Active Substance: ENOXAPARIN SODIUM
     Dosage: 200 MG/D (2X100)
     Route: 064
     Dates: start: 20111214, end: 20120320
  20. RITUXIMAB [Suspect]
     Active Substance: RITUXIMAB
     Dosage: UNK, LAST TIME IN DECEMBER 2011: PRE OR PERICONCEPTIONAL
     Route: 064
     Dates: end: 201112
  21. CYTOTEC [Concomitant]
     Active Substance: MISOPROSTOL
     Dosage: UNK, 13.6 GESTATIONAL WEEK
     Route: 064
     Dates: start: 20120320, end: 20120320
  22. MIFEPRISTONE [Concomitant]
     Active Substance: MIFEPRISTONE
     Dosage: UNK, 13.6 GESTATIONAL WEEK
     Route: 064
     Dates: start: 20120320, end: 20120320
  23. CYCLOPHOSPHAMIDE [Concomitant]
     Active Substance: CYCLOPHOSPHAMIDE
     Dosage: 3000 MG CUMULATIVE, PRECONCEPTIONAL
     Route: 064
     Dates: start: 201104, end: 201108
  24. ASPIRIN [Suspect]
     Active Substance: ASPIRIN
     Dosage: FROM GESTATIONAL WEEK 0-14
     Dates: start: 20111214, end: 20120320
  25. METAMIZOLE [Suspect]
     Active Substance: METAMIZOLE
     Dosage: TRIMESTER: FIRST, PROBABLY ONLY IN HOSPITAL IN WEEK 5

REACTIONS (8)
  - Foetal exposure during pregnancy [Fatal]
  - Heart disease congenital [Fatal]
  - Truncus arteriosus persistent [Fatal]
  - Ventricular septal defect [Fatal]
  - Cardiac septal defect [Fatal]
  - Low birth weight baby [Unknown]
  - Premature baby [Unknown]
  - Congenital cardiovascular anomaly [Fatal]
